FAERS Safety Report 9515456 (Version 1)
Quarter: 2013Q3

REPORT INFORMATION
  Report Type: Spontaneous
  Country: BR (occurrence: BR)
  Receive Date: 20130911
  Receipt Date: 20130911
  Transmission Date: 20140515
  Serious: Yes (Other)
  Sender: FDA-Public Use
  Company Number: BR-PFIZER INC-2013260919

PATIENT
  Sex: Female

DRUGS (1)
  1. TECTA [Suspect]
     Dosage: 40 MG, DAILY
     Route: 048

REACTIONS (1)
  - Leukoplakia oral [Recovered/Resolved]
